FAERS Safety Report 6665408-2 (Version None)
Quarter: 2010Q2

REPORT INFORMATION
  Report Type: 
  Country: None (occurrence: None)
  Receive Date: 20100402
  Receipt Date: 20100324
  Transmission Date: 20101027
  Serious: Yes (Death)
  Sender: FDA-Public Use
  Company Number: UA-PFIZER INC-2010023588

PATIENT
  Age: 33 Year
  Sex: Male

DRUGS (3)
  1. MEDROL [Suspect]
     Indication: SYSTEMIC LUPUS ERYTHEMATOSUS
     Dosage: 48MG/DAY
     Route: 048
     Dates: start: 20100128
  2. FUROSEMID [Concomitant]
     Indication: NEPHROTIC SYNDROME
     Dosage: UNK
     Route: 048
  3. VEROSPIRON [Concomitant]
     Dosage: UNK
     Route: 048

REACTIONS (4)
  - ECCHYMOSIS [None]
  - EPISTAXIS [None]
  - PETECHIAE [None]
  - SYSTEMIC LUPUS ERYTHEMATOSUS [None]
